FAERS Safety Report 19522356 (Version 1)
Quarter: 2021Q3

REPORT INFORMATION
  Report Type: Spontaneous
  Country: AU (occurrence: AU)
  Receive Date: 20210712
  Receipt Date: 20210712
  Transmission Date: 20211014
  Serious: Yes (Hospitalization)
  Sender: FDA-Public Use
  Company Number: AU-ELI_LILLY_AND_COMPANY-AU202107000643

PATIENT
  Age: 26 Year
  Sex: Male

DRUGS (8)
  1. CLOZAPINE. [Suspect]
     Active Substance: CLOZAPINE
     Indication: SCHIZOPHRENIA
     Dosage: 50 MG, DAILY
     Route: 048
     Dates: start: 20201016
  2. LATUDA [Suspect]
     Active Substance: LURASIDONE HYDROCHLORIDE
     Dosage: 40 MG, DAILY
     Route: 065
     Dates: end: 20201029
  3. CLOZAPINE. [Suspect]
     Active Substance: CLOZAPINE
     Dosage: 175 MG, DAILY
     Route: 048
  4. ZYPREXA [Suspect]
     Active Substance: OLANZAPINE
     Dosage: 5 MG, DAILY
     Route: 065
  5. ZYPREXA [Suspect]
     Active Substance: OLANZAPINE
     Indication: SCHIZOPHRENIA
     Dosage: 10 MG, DAILY
     Route: 065
  6. LATUDA [Suspect]
     Active Substance: LURASIDONE HYDROCHLORIDE
     Indication: SCHIZOPHRENIA
     Dosage: 80 MG, DAILY
     Route: 065
  7. CLOZAPINE. [Suspect]
     Active Substance: CLOZAPINE
     Dosage: 12.5 MG, DAILY
     Route: 048
     Dates: end: 20201105
  8. CLOZAPINE. [Suspect]
     Active Substance: CLOZAPINE
     Dosage: 125 MG, DAILY
     Route: 048
     Dates: end: 20201105

REACTIONS (17)
  - C-reactive protein [Not Recovered/Not Resolved]
  - Liver function test abnormal [Unknown]
  - Headache [Unknown]
  - Nausea [Unknown]
  - Tachypnoea [Unknown]
  - Cough [Recovered/Resolved]
  - Rhinitis [Recovered/Resolved]
  - Neutrophil count increased [Recovered/Resolved]
  - Pyrexia [Recovered/Resolved]
  - Sinus tachycardia [Recovered/Resolved]
  - Neuroleptic malignant syndrome [Unknown]
  - Chills [Recovered/Resolved]
  - Schizophrenia [Unknown]
  - White blood cell count increased [Recovered/Resolved]
  - Monocyte count increased [Unknown]
  - Tachycardia [Recovered/Resolved]
  - Electrocardiogram ST segment elevation [Unknown]

NARRATIVE: CASE EVENT DATE: 2020
